FAERS Safety Report 10224912 (Version 1)
Quarter: 2014Q2

REPORT INFORMATION
  Report Type: Report from Study
  Country: CA (occurrence: CA)
  Receive Date: 20140609
  Receipt Date: 20140609
  Transmission Date: 20141212
  Serious: Yes (Hospitalization)
  Sender: FDA-Public Use
  Company Number: CA-BRISTOL-MYERS SQUIBB COMPANY-20928263

PATIENT
  Age: 66 Year
  Sex: Female

DRUGS (12)
  1. ORENCIA [Suspect]
     Indication: RHEUMATOID ARTHRITIS
     Dosage: 30MAY14 INFUSION WAS CANCELLED
     Route: 042
     Dates: start: 20100726
  2. OMEPRAZOLE [Concomitant]
  3. AZATHIOPRINE [Concomitant]
  4. COVERSYL PLUS [Concomitant]
  5. PREDNISONE [Concomitant]
  6. FOLIC ACID [Concomitant]
  7. COLCHICINE [Concomitant]
  8. LEVOTHYROXINE [Concomitant]
  9. ESTROGEN [Concomitant]
  10. PROGESTERONE [Concomitant]
  11. CLOZAPINE [Concomitant]
  12. ROBAXACET [Concomitant]

REACTIONS (1)
  - Dehydration [Unknown]
